FAERS Safety Report 6428304-1 (Version None)
Quarter: 2009Q4

REPORT INFORMATION
  Report Type: 
  Country: None (occurrence: None)
  Receive Date: 20091104
  Receipt Date: 20091104
  Transmission Date: 20100525
  Serious: No
  Sender: FDA-Public Use
  Company Number: None

PATIENT
  Age: 76 Year
  Sex: Male

DRUGS (1)
  1. VAPRISOL [Suspect]
     Indication: INAPPROPRIATE ANTIDIURETIC HORMONE SECRETION
     Dosage: 20 MG OTHER IV
     Route: 042
     Dates: start: 20090810, end: 20090810

REACTIONS (2)
  - PALPITATIONS [None]
  - TACHYCARDIA [None]
